FAERS Safety Report 5648230-5 (Version None)
Quarter: 2008Q1

REPORT INFORMATION
  Report Type: 
  Country: None (occurrence: None)
  Receive Date: 20080131
  Receipt Date: 20071212
  Transmission Date: 20080703
  Serious: No
  Sender: FDA-Public Use
  Company Number: US200708004755

PATIENT
  Age: 60 Year
  Sex: Male
  Weight: 80.3 kg

DRUGS (16)
  1. BYETTA [Suspect]
     Indication: TYPE 2 DIABETES MELLITUS
     Dosage: SEE IMAGE
     Route: 058
     Dates: start: 20070810, end: 20070820
  2. BYETTA [Suspect]
     Indication: TYPE 2 DIABETES MELLITUS
     Dosage: SEE IMAGE
     Route: 058
     Dates: start: 20070801, end: 20070901
  3. BYETTA [Suspect]
     Indication: TYPE 2 DIABETES MELLITUS
     Dosage: SEE IMAGE
     Route: 058
     Dates: start: 20070801
  4. BYETTA [Suspect]
     Indication: TYPE 2 DIABETES MELLITUS
     Dosage: SEE IMAGE
     Route: 058
     Dates: start: 20070814
  5. BYETTA [Suspect]
     Indication: TYPE 2 DIABETES MELLITUS
     Dosage: SEE IMAGE
     Route: 058
     Dates: start: 20070820
  6. BYETTA [Suspect]
     Indication: TYPE 2 DIABETES MELLITUS
     Dosage: SEE IMAGE
     Route: 058
     Dates: start: 20070901
  7. BYETTA [Suspect]
  8. BYETTA [Suspect]
  9. METFORMIN HCL [Concomitant]
  10. METFORMIN HCL (METFORMIN HYDROCHLORIDE) [Concomitant]
  11. AVANDIA [Concomitant]
  12. GLUCOTROL [Concomitant]
  13. LIBRAX (CHLORDIAZEPOXIDE, CLIDINIUM BROMIDE) [Concomitant]
  14. KLONOPIN [Concomitant]
  15. ALTACE [Concomitant]
  16. DRUG USED IN DIABETES [Concomitant]

REACTIONS (10)
  - ABDOMINAL PAIN LOWER [None]
  - AGITATION [None]
  - CONFUSIONAL STATE [None]
  - CONSTIPATION [None]
  - DECREASED APPETITE [None]
  - DISTURBANCE IN ATTENTION [None]
  - ERUCTATION [None]
  - FEELING ABNORMAL [None]
  - NAUSEA [None]
  - WEIGHT DECREASED [None]
